FAERS Safety Report 8365182-8 (Version None)
Quarter: 2012Q2

REPORT INFORMATION
  Report Type: 
  Country: None (occurrence: None)
  Receive Date: 20120516
  Receipt Date: 20120503
  Transmission Date: 20120825
  Serious: Yes (Other)
  Sender: FDA-Public Use
  Company Number: US-AMGEN-USASP2012028296

PATIENT
  Age: 74 Year
  Sex: Female

DRUGS (2)
  1. PROLIA [Suspect]
     Indication: OSTEOPOROSIS POSTMENOPAUSAL
  2. CALCIUM [Concomitant]
     Indication: HYPOCALCAEMIA
     Dosage: UNK

REACTIONS (9)
  - BEHCET'S SYNDROME [None]
  - NEUTROPHIL COUNT DECREASED [None]
  - BACK PAIN [None]
  - HYPOCALCAEMIA [None]
  - ANAEMIA [None]
  - LOW DENSITY LIPOPROTEIN INCREASED [None]
  - PAIN [None]
  - MUSCLE SPASMS [None]
  - PRURITUS [None]
